FAERS Safety Report 18850149 (Version 2)
Quarter: 2023Q4

REPORT INFORMATION
  Report Type: Report from Study
  Country: US (occurrence: US)
  Receive Date: 20210205
  Receipt Date: 20231018
  Transmission Date: 20240110
  Serious: Yes (Death, Hospitalization, Other)
  Sender: FDA-Public Use
  Company Number: US-ACADIA PHARMACEUTICALS INC.-ACA-2021-PIM-000411

PATIENT
  Age: 80 Year
  Sex: Female

DRUGS (9)
  1. NUPLAZID [Suspect]
     Active Substance: PIMAVANSERIN TARTRATE
     Indication: Parkinson^s disease
     Dosage: 34 MILLIGRAM, QD
     Route: 048
     Dates: start: 201907
  2. ALGAL 900 DHA [Concomitant]
  3. CARAFATE [Concomitant]
     Active Substance: SUCRALFATE
  4. CYMBALTA [Concomitant]
     Active Substance: DULOXETINE HYDROCHLORIDE
  5. DEPLIN [Concomitant]
     Active Substance: LEVOMEFOLATE CALCIUM
  6. EXELON [Concomitant]
     Active Substance: RIVASTIGMINE TARTRATE
  7. REMERON [Concomitant]
     Active Substance: MIRTAZAPINE
  8. FAMOTIDINE [Concomitant]
     Active Substance: FAMOTIDINE
  9. ROZEREM [Concomitant]
     Active Substance: RAMELTEON

REACTIONS (2)
  - Death [Fatal]
  - COVID-19 [Unknown]

NARRATIVE: CASE EVENT DATE: 20231003
